FAERS Safety Report 7708490-3 (Version None)
Quarter: 2011Q3

REPORT INFORMATION
  Report Type: 
  Country: None (occurrence: None)
  Receive Date: 20110825
  Receipt Date: 20110817
  Transmission Date: 20111222
  Serious: Yes (Other)
  Sender: FDA-Public Use
  Company Number: US-GENZYME-THYM-1002709

PATIENT
  Age: 28 Year
  Sex: Female

DRUGS (2)
  1. THYMOGLOBULIN [Suspect]
  2. THYMOGLOBULIN [Suspect]
     Indication: PROPHYLAXIS AGAINST TRANSPLANT REJECTION
     Dosage: UNK
     Route: 042
     Dates: start: 20090101, end: 20090101

REACTIONS (2)
  - KIDNEY TRANSPLANT REJECTION [None]
  - PANCREAS TRANSPLANT REJECTION [None]
